FAERS Safety Report 7571548-6 (Version None)
Quarter: 2011Q2

REPORT INFORMATION
  Report Type: 
  Country: None (occurrence: None)
  Receive Date: 20110624
  Receipt Date: 20110616
  Transmission Date: 20111010
  Serious: Yes (Hospitalization)
  Sender: FDA-Public Use
  Company Number: JP-JNJFOC-20100608450

PATIENT
  Sex: Female
  Weight: 65 kg

DRUGS (20)
  1. SEROTONE [Concomitant]
     Indication: PROPHYLAXIS
     Route: 042
     Dates: start: 20100420, end: 20100420
  2. DECADRON [Concomitant]
     Route: 048
     Dates: start: 20100525, end: 20100526
  3. DECADRON [Concomitant]
     Route: 048
     Dates: start: 20100520, end: 20100524
  4. CINAL [Concomitant]
     Indication: PIGMENTATION DISORDER
     Route: 048
     Dates: start: 20100526
  5. BROTIZOLAM [Concomitant]
     Route: 065
  6. DECADRON [Concomitant]
     Route: 048
     Dates: start: 20100425, end: 20100426
  7. PYDOXAL [Concomitant]
     Indication: STOMATITIS
     Route: 048
     Dates: start: 20100507, end: 20100619
  8. DECADRON [Concomitant]
     Route: 042
     Dates: start: 20100520, end: 20100520
  9. LOXONIN [Concomitant]
     Indication: INTERSTITIAL LUNG DISEASE
     Dosage: AS NEEDED.
     Route: 048
     Dates: start: 20100420
  10. AZUNOL [Concomitant]
     Indication: STOMATITIS
     Route: 048
     Dates: start: 20100507, end: 20100603
  11. DOXIL [Suspect]
     Indication: OVARIAN CANCER RECURRENT
     Route: 042
     Dates: start: 20100420, end: 20100420
  12. DOXIL [Suspect]
     Route: 042
     Dates: start: 20100520, end: 20100520
  13. DECADRON [Concomitant]
     Route: 048
     Dates: start: 20100420, end: 20100424
  14. KERATINAMIN [Concomitant]
     Indication: PIGMENTATION DISORDER
     Route: 061
     Dates: start: 20100526
  15. FOIPAN [Concomitant]
     Indication: STOMATITIS
     Route: 002
     Dates: start: 20100507
  16. SEROTONE [Concomitant]
     Route: 042
     Dates: start: 20100520, end: 20100520
  17. MUCOSTA [Concomitant]
     Indication: PROPHYLAXIS
     Route: 048
     Dates: start: 20100420, end: 20100619
  18. LOPEMIN [Concomitant]
     Indication: PROPHYLAXIS
     Route: 048
     Dates: start: 20100421
  19. ASCORBIC ACID [Concomitant]
     Route: 065
  20. DECADRON [Concomitant]
     Indication: PROPHYLAXIS
     Route: 042
     Dates: start: 20100420, end: 20100420

REACTIONS (1)
  - INTERSTITIAL LUNG DISEASE [None]
